FAERS Safety Report 9226900 (Version 1)
Quarter: 2013Q2

REPORT INFORMATION
  Report Type: Spontaneous
  Country: US (occurrence: None)
  Receive Date: 20130410
  Receipt Date: 20130410
  Transmission Date: 20140414
  Serious: Yes (Death, Hospitalization)
  Sender: FDA-Public Use
  Company Number: None

PATIENT
  Age: 61 Year
  Sex: Male
  Weight: 78.2 kg

DRUGS (2)
  1. CISPLATIN [Suspect]
     Dates: end: 20111110
  2. DOCETAXEL (TAXOTERE) [Suspect]
     Dates: end: 20111110

REACTIONS (7)
  - Hypotension [None]
  - Malaise [None]
  - Lethargy [None]
  - Altered state of consciousness [None]
  - Heart rate increased [None]
  - Blood pressure diastolic decreased [None]
  - Febrile neutropenia [None]
